FAERS Safety Report 25610756 (Version 3)
Quarter: 2025Q3

REPORT INFORMATION
  Report Type: Spontaneous
  Country: US (occurrence: US)
  Receive Date: 20250728
  Receipt Date: 20250910
  Transmission Date: 20251021
  Serious: Yes (Other)
  Sender: SANOFI AVENTIS
  Company Number: US-SA-2025SA212250

PATIENT
  Age: 49 Year
  Sex: Female

DRUGS (1)
  1. DUPIXENT [Suspect]
     Active Substance: DUPILUMAB
     Indication: Asthma
     Dosage: 300 MG, QOW
     Route: 058

REACTIONS (9)
  - Anaphylactic reaction [Unknown]
  - Urticaria [Unknown]
  - Hypoxia [Unknown]
  - Respiratory tract infection viral [Unknown]
  - Activities of daily living decreased [Unknown]
  - Dyspnoea [Unknown]
  - Alopecia [Unknown]
  - Oxygen saturation decreased [Unknown]
  - Therapeutic response shortened [Unknown]

NARRATIVE: CASE EVENT DATE: 20250701
